FAERS Safety Report 10238999 (Version 1)
Quarter: 2014Q2

REPORT INFORMATION
  Report Type: Spontaneous
  Country: JP (occurrence: JP)
  Receive Date: 20140616
  Receipt Date: 20140616
  Transmission Date: 20141212
  Serious: Yes (Death)
  Sender: FDA-Public Use
  Company Number: JP-ASTRAZENECA-2014SE41155

PATIENT
  Age: 29 Year
  Sex: Male

DRUGS (1)
  1. DIPRIVAN INJECTION - KIT [Suspect]
     Route: 042
     Dates: start: 201210, end: 201210

REACTIONS (2)
  - Rhabdomyolysis [Fatal]
  - Multi-organ failure [Fatal]
